FAERS Safety Report 25590221 (Version 1)
Quarter: 2025Q3

REPORT INFORMATION
  Report Type: Spontaneous
  Country: US (occurrence: US)
  Receive Date: 20250722
  Receipt Date: 20250722
  Transmission Date: 20251021
  Serious: Yes (Hospitalization, Other)
  Sender: NOVARTIS
  Company Number: US-002147023-NVSC2025US115235

PATIENT
  Sex: Male

DRUGS (1)
  1. ENTRESTO [Suspect]
     Active Substance: SACUBITRIL\VALSARTAN
     Indication: Cardiac failure
     Route: 065

REACTIONS (6)
  - Adverse drug reaction [Unknown]
  - Renal cancer [Unknown]
  - Hallucination [Unknown]
  - Chest pain [Unknown]
  - Delusion [Unknown]
  - Paranoia [Unknown]
